FAERS Safety Report 5591202-X (Version None)
Quarter: 2008Q1

REPORT INFORMATION
  Report Type: 
  Country: None (occurrence: None)
  Receive Date: 20080115
  Receipt Date: 20080110
  Transmission Date: 20080703
  Serious: Yes (Death)
  Sender: FDA-Public Use
  Company Number: US-ASTRAZENECA-2008AC00162

PATIENT
  Age: 35 Year
  Sex: Male

DRUGS (5)
  1. LISINOPRIL [Suspect]
     Route: 048
  2. BUPROPION HCL [Suspect]
     Route: 048
  3. ARIPIPRAZOLE [Suspect]
     Route: 048
  4. CITALOPRAM [Suspect]
     Route: 048
  5. VALPROIC ACID [Suspect]
     Route: 048

REACTIONS (1)
  - COMPLETED SUICIDE [None]
